FAERS Safety Report 9815238 (Version 8)
Quarter: 2014Q2

REPORT INFORMATION
  Report Type: Report from Study
  Country: CA (occurrence: CA)
  Receive Date: 20140114
  Receipt Date: 20140425
  Transmission Date: 20141212
  Serious: Yes (Hospitalization, Other)
  Sender: FDA-Public Use
  Company Number: CA-ROCHE-1104729

PATIENT
  Age: 47 Year
  Sex: Female
  Weight: 87 kg

DRUGS (20)
  1. RITUXAN [Suspect]
     Indication: RHEUMATOID ARTHRITIS
     Route: 042
     Dates: start: 20120807, end: 20130221
  2. ACTEMRA [Suspect]
     Indication: RHEUMATOID ARTHRITIS
     Route: 042
  3. ACTEMRA [Suspect]
     Route: 042
     Dates: start: 20131205, end: 20140130
  4. MOXIFLOXACIN [Suspect]
     Indication: LOWER RESPIRATORY TRACT INFECTION
     Route: 048
     Dates: start: 20140202, end: 20140205
  5. METHOTREXATE [Suspect]
     Indication: PRODUCT USED FOR UNKNOWN INDICATION
     Route: 065
  6. FOLIC ACID [Concomitant]
     Route: 065
  7. VITAMIN B12 [Concomitant]
  8. SYNTHROID [Concomitant]
  9. PREVACID [Concomitant]
  10. ACEBUTOLOL [Concomitant]
  11. VALACYCLOVIR [Concomitant]
  12. BENADRYL (CANADA) [Concomitant]
  13. GRAVOL [Concomitant]
  14. TYLENOL [Concomitant]
  15. ADVIL [Concomitant]
  16. DIPHENHYDRAMINE HCL [Concomitant]
     Indication: PREMEDICATION
     Route: 048
     Dates: start: 20120807, end: 20120807
  17. ACETAMINOPHEN [Concomitant]
     Indication: PREMEDICATION
     Route: 048
     Dates: start: 20120807, end: 20120807
  18. METHYLPREDNISOLONE [Concomitant]
     Indication: PREMEDICATION
     Route: 042
     Dates: start: 20120807, end: 20120807
  19. FOLATE [Concomitant]
  20. VOLTAREN [Concomitant]

REACTIONS (19)
  - Influenza [Unknown]
  - Joint swelling [Recovered/Resolved]
  - Rash [Recovered/Resolved]
  - Infection [Unknown]
  - Hepatic enzyme increased [Unknown]
  - Lower respiratory tract infection [Unknown]
  - Rash [Unknown]
  - Swelling [Unknown]
  - Hypotension [Unknown]
  - Pyrexia [Unknown]
  - White blood cell count increased [Unknown]
  - Weight increased [Unknown]
  - Thirst [Recovered/Resolved]
  - Infusion related reaction [Recovered/Resolved]
  - Rhinorrhoea [Recovered/Resolved]
  - Conjunctivitis [Not Recovered/Not Resolved]
  - Dry eye [Not Recovered/Not Resolved]
  - Eye pain [Not Recovered/Not Resolved]
  - Drug ineffective [Unknown]
